FAERS Safety Report 9895607 (Version 2)
Quarter: 2014Q1

REPORT INFORMATION
  Report Type: Spontaneous
  Country: US (occurrence: US)
  Receive Date: 20140213
  Receipt Date: 20140213
  Transmission Date: 20141002
  Serious: No
  Sender: FDA-Public Use
  Company Number: US-BRISTOL-MYERS SQUIBB COMPANY-17384082

PATIENT
  Age: 67 Year
  Sex: Female
  Weight: 74.83 kg

DRUGS (16)
  1. ABATACEPT SUBQ INJECTION 125MG/ML [Suspect]
     Indication: RHEUMATOID ARTHRITIS
     Route: 058
     Dates: start: 20121013, end: 201303
  2. DOCUSATE [Concomitant]
  3. PLAQUENIL [Concomitant]
     Dates: start: 2010
  4. COREG [Concomitant]
  5. LISINOPRIL [Concomitant]
  6. HYDROCHLOROTHIAZIDE [Concomitant]
  7. FELODIPINE [Concomitant]
  8. CRESTOR [Concomitant]
  9. JANUVIA [Concomitant]
  10. CYMBALTA [Concomitant]
  11. LYRICA [Concomitant]
  12. AMBIEN [Concomitant]
  13. HYDROCODONE [Concomitant]
  14. OMEGA 3 FISH OIL [Concomitant]
  15. MULTIVITAMIN [Concomitant]
  16. BABY ASPIRIN [Concomitant]

REACTIONS (6)
  - Drug ineffective [Unknown]
  - Nasopharyngitis [Unknown]
  - Contusion [Unknown]
  - Fall [Unknown]
  - Blood glucose increased [Unknown]
  - Upper respiratory tract infection [Recovered/Resolved]
